FAERS Safety Report 19483820 (Version 2)
Quarter: 2021Q3

REPORT INFORMATION
  Report Type: Report from Study
  Country: US (occurrence: US)
  Receive Date: 20210701
  Receipt Date: 20210712
  Transmission Date: 20211014
  Serious: Yes (Hospitalization, Other)
  Sender: FDA-Public Use
  Company Number: US-JNJFOC-20210650072

PATIENT
  Age: 85 Year
  Sex: Female
  Weight: 95.5 kg

DRUGS (7)
  1. METOPROLOL. [Concomitant]
     Active Substance: METOPROLOL
     Dosage: CUT DOSE IN HALF
  2. SELEXIPAG [Suspect]
     Active Substance: SELEXIPAG
     Dosage: 1000 MCG IN AM AND 12000 IN PM ON 24?JUN?2021
     Route: 048
     Dates: start: 202106
  3. TADALAFIL. [Concomitant]
     Active Substance: TADALAFIL
  4. ELIQUIS [Concomitant]
     Active Substance: APIXABAN
  5. SELEXIPAG [Suspect]
     Active Substance: SELEXIPAG
     Indication: PULMONARY ARTERIAL HYPERTENSION
     Route: 048
  6. SELEXIPAG [Suspect]
     Active Substance: SELEXIPAG
     Route: 048
  7. SELEXIPAG [Suspect]
     Active Substance: SELEXIPAG
     Dosage: 600 MCG IN THE MORNING AND 1200 MCG IN THE EVENING
     Route: 048

REACTIONS (4)
  - Pain in jaw [Unknown]
  - Chest discomfort [Unknown]
  - Headache [Unknown]
  - Nodal rhythm [Unknown]

NARRATIVE: CASE EVENT DATE: 202106
